FAERS Safety Report 24987065 (Version 1)
Quarter: 2025Q1

REPORT INFORMATION
  Report Type: Spontaneous
  Country: JP (occurrence: JP)
  Receive Date: 20250219
  Receipt Date: 20250219
  Transmission Date: 20250409
  Serious: Yes (Life-Threatening, Hospitalization, Other)
  Sender: PFIZER
  Company Number: JP-PFIZER INC-202400216560

PATIENT
  Age: 73 Year
  Sex: Female
  Weight: 45.6 kg

DRUGS (73)
  1. ELREXFIO [Suspect]
     Active Substance: ELRANATAMAB-BCMM
     Indication: Plasma cell myeloma
     Dosage: 12 MG, 1X/DAY
     Route: 058
     Dates: start: 20240710, end: 20240710
  2. ELREXFIO [Suspect]
     Active Substance: ELRANATAMAB-BCMM
     Dosage: 32 MG, 1X/DAY
     Route: 058
     Dates: start: 20240714, end: 20240714
  3. ELREXFIO [Suspect]
     Active Substance: ELRANATAMAB-BCMM
     Indication: Plasma cell myeloma
     Dosage: 76 MG, 1X/DAY
     Route: 058
     Dates: start: 20240719, end: 20240719
  4. AZOSEMIDE [Concomitant]
     Active Substance: AZOSEMIDE
     Dosage: 1 DF, 1X/DAY AFTER BREAKFAST, ^DSEP^
     Dates: start: 20240719, end: 20240722
  5. URSODIOL [Concomitant]
     Active Substance: URSODIOL
     Dosage: 2 DF, 3X/DAY AFTER BREAKFAST, LUNCH, AND DINNER, ^JG^
  6. POTASSIUM CHLORIDE [Concomitant]
     Active Substance: POTASSIUM CHLORIDE
     Dosage: 2 DF, 2X/DAY AFTER BREAKFAST AND DINNER, ^ST^
     Dates: start: 20240719, end: 20240722
  7. CALONAL [Concomitant]
     Active Substance: ACETAMINOPHEN
     Dosage: 3 DF, 1X/DAY
     Dates: start: 20240709, end: 20240710
  8. CALONAL [Concomitant]
     Active Substance: ACETAMINOPHEN
     Dosage: 3 DF, 1X/DAY
     Dates: start: 20240713, end: 20240714
  9. CALONAL [Concomitant]
     Active Substance: ACETAMINOPHEN
     Dosage: 3 DF, 1X/DAY
     Dates: start: 20240719, end: 20240719
  10. CALONAL [Concomitant]
     Active Substance: ACETAMINOPHEN
     Dosage: 2 DF, 3X/DAY AFTER BREAKFAST, LUNCH, AND DINNER
  11. SPIRONOLACTONE [Concomitant]
     Active Substance: SPIRONOLACTONE
     Dates: start: 20240719
  12. ZOVIRAX [Concomitant]
     Active Substance: ACYCLOVIR
     Dosage: 1 DF, 1X/DAY AFTER BREAKFAST
  13. DAYVIGO [Concomitant]
     Active Substance: LEMBOREXANT
  14. DAYVIGO [Concomitant]
     Active Substance: LEMBOREXANT
  15. DAYVIGO [Concomitant]
     Active Substance: LEMBOREXANT
  16. CALCIUM CARBONATE\CHOLECALCIFEROL\MAGNESIUM CARBONATE [Concomitant]
     Active Substance: CALCIUM CARBONATE\CHOLECALCIFEROL\MAGNESIUM CARBONATE
  17. TOLVAPTAN [Concomitant]
     Active Substance: TOLVAPTAN
     Dates: start: 20240710, end: 20240717
  18. TOLVAPTAN [Concomitant]
     Active Substance: TOLVAPTAN
     Dates: start: 20240718, end: 20240724
  19. TOLVAPTAN [Concomitant]
     Active Substance: TOLVAPTAN
     Dates: start: 20240720, end: 20240725
  20. BISOPROLOL FUMARATE [Concomitant]
     Active Substance: BISOPROLOL FUMARATE
     Dates: start: 20240710, end: 20240724
  21. FLUCONAZOLE [Concomitant]
     Active Substance: FLUCONAZOLE
     Dosage: 2 DF, 1X/DAY AFTER BREAKFAST, ^JG^
     Dates: end: 20240710
  22. FLUCONAZOLE [Concomitant]
     Active Substance: FLUCONAZOLE
     Dosage: 1 DF, 1X/DAY AFTER BREAKFAST, ^JG^
     Dates: start: 20240711, end: 20240717
  23. FLUCONAZOLE [Concomitant]
     Active Substance: FLUCONAZOLE
     Dosage: 2 DF, 1X/DAY AFTER BREAKFAST, ^JG^
     Dates: start: 20240718, end: 20240724
  24. FLUCONAZOLE [Concomitant]
     Active Substance: FLUCONAZOLE
     Dosage: 1 DF, 1X/DAY AFTER BREAKFAST, ^JG^
     Dates: start: 20240803
  25. BETAHISTINE MESILATE [Concomitant]
     Active Substance: BETAHISTINE MESILATE
     Dosage: 1 DF, 3X/DAY AFTER BREAKFAST, LUNCH, AND DINNER
     Dates: end: 20240731
  26. RABEPRAZOLE SODIUM [Concomitant]
     Active Substance: RABEPRAZOLE SODIUM
     Dosage: 1 DF, 1X/DAY AFTER BREAKFAST, ^MEIJI^
  27. LINZESS [Concomitant]
     Active Substance: LINACLOTIDE
     Dosage: 2 DF, 1X/DAY BEFORE BREAKFAST
  28. DIPHENHYDRAMINE [Concomitant]
     Active Substance: DIPHENHYDRAMINE
     Dates: start: 20240709, end: 20240710
  29. DIPHENHYDRAMINE [Concomitant]
     Active Substance: DIPHENHYDRAMINE
     Dates: start: 20240713, end: 20240714
  30. DIPHENHYDRAMINE [Concomitant]
     Active Substance: DIPHENHYDRAMINE
     Dates: start: 20240719, end: 20240719
  31. LENADEX [Concomitant]
     Active Substance: DEXAMETHASONE ACETATE
     Dosage: 5 DF, 1X/DAY
     Dates: start: 20240709, end: 20240710
  32. LENADEX [Concomitant]
     Active Substance: DEXAMETHASONE ACETATE
     Dosage: 5 DF, 1X/DAY
     Dates: start: 20240713, end: 20240714
  33. LENADEX [Concomitant]
     Active Substance: DEXAMETHASONE ACETATE
     Dosage: 5 DF, 1X/DAY
     Dates: start: 20240719, end: 20240719
  34. LEVOFLOXACIN [Concomitant]
     Active Substance: LEVOFLOXACIN
     Dosage: 1 DF, 1X/DAY BEFORE SLEEP
     Dates: end: 20240710
  35. LEVOFLOXACIN [Concomitant]
     Active Substance: LEVOFLOXACIN
     Dosage: 1 DF, 1X/DAY AFTER BREAKFAST
     Dates: start: 20240711, end: 20240724
  36. LEVOFLOXACIN [Concomitant]
     Active Substance: LEVOFLOXACIN
     Dosage: 1 DF, 1X/DAY AFTER BREAKFAST
     Dates: start: 20240801
  37. SODIUM GUALENATE [Concomitant]
     Active Substance: SODIUM GUALENATE
     Indication: Stomatitis
     Dosage: 5 ML 1 BOTTLE FOR 7 DAYS FOR GARGLING, PRESCRIBED ON 16JUL2024
  38. BICARBON [CALCIUM CHLORIDE DIHYDRATE;MAGNESIUM CHLORIDE HEXAHYDRATE;PO [Concomitant]
     Route: 041
     Dates: start: 20240710, end: 20240720
  39. BICARBON [CALCIUM CHLORIDE DIHYDRATE;MAGNESIUM CHLORIDE HEXAHYDRATE;PO [Concomitant]
     Route: 041
     Dates: start: 20240721, end: 20240721
  40. BICARBON [CALCIUM CHLORIDE DIHYDRATE;MAGNESIUM CHLORIDE HEXAHYDRATE;PO [Concomitant]
     Route: 041
     Dates: start: 20240722, end: 20240723
  41. FUROSEMIDE NIG [Concomitant]
     Route: 042
     Dates: start: 20240708, end: 20240708
  42. FUROSEMIDE NIG [Concomitant]
     Route: 042
     Dates: start: 20240716, end: 20240719
  43. FUROSEMIDE NIG [Concomitant]
     Route: 042
     Dates: start: 20240720, end: 20240724
  44. FUROSEMIDE NIG [Concomitant]
     Route: 042
     Dates: start: 20240725, end: 20240726
  45. ACTEMRA [Concomitant]
     Active Substance: TOCILIZUMAB
     Dates: start: 20240710, end: 20240710
  46. ACTEMRA [Concomitant]
     Active Substance: TOCILIZUMAB
     Dates: start: 20240720, end: 20240721
  47. ACTEMRA [Concomitant]
     Active Substance: TOCILIZUMAB
     Dates: start: 20240710, end: 20240710
  48. ACTEMRA [Concomitant]
     Active Substance: TOCILIZUMAB
     Dates: start: 20240720, end: 20240721
  49. KENKETU GLOVENIN-I [Concomitant]
     Active Substance: HUMAN IMMUNOGLOBULIN G
     Dosage: FOR I. V. INJECTION 100 ML 1 VIAL, WEEKLY
     Dates: start: 20240708
  50. SODIUM CHLORIDE [Concomitant]
     Active Substance: SODIUM CHLORIDE
     Dates: start: 20240710, end: 20240710
  51. SODIUM CHLORIDE [Concomitant]
     Active Substance: SODIUM CHLORIDE
     Dates: start: 20240713, end: 20240717
  52. SODIUM CHLORIDE [Concomitant]
     Active Substance: SODIUM CHLORIDE
     Dates: start: 20240720, end: 20240720
  53. SODIUM CHLORIDE [Concomitant]
     Active Substance: SODIUM CHLORIDE
     Dates: start: 20240721, end: 20240721
  54. CEFEPIME HYDROCHLORIDE [Concomitant]
     Active Substance: CEFEPIME HYDROCHLORIDE
     Route: 041
     Dates: start: 20240713, end: 20240717
  55. CEFEPIME HYDROCHLORIDE [Concomitant]
     Active Substance: CEFEPIME HYDROCHLORIDE
     Route: 041
     Dates: start: 20240720, end: 20240720
  56. CEFEPIME HYDROCHLORIDE [Concomitant]
     Active Substance: CEFEPIME HYDROCHLORIDE
     Route: 041
     Dates: start: 20240721, end: 20240724
  57. CEFEPIME HYDROCHLORIDE [Concomitant]
     Active Substance: CEFEPIME HYDROCHLORIDE
     Route: 041
     Dates: start: 20240725, end: 20240731
  58. CHLORPHENIRAMINE MALEATE [Concomitant]
     Active Substance: CHLORPHENIRAMINE MALEATE
     Route: 042
     Dates: start: 20240708, end: 20240708
  59. CHLORPHENIRAMINE MALEATE [Concomitant]
     Active Substance: CHLORPHENIRAMINE MALEATE
     Route: 042
     Dates: start: 20240710, end: 20240710
  60. CHLORPHENIRAMINE MALEATE [Concomitant]
     Active Substance: CHLORPHENIRAMINE MALEATE
     Route: 042
     Dates: start: 20240713, end: 20240713
  61. CHLORPHENIRAMINE MALEATE [Concomitant]
     Active Substance: CHLORPHENIRAMINE MALEATE
     Route: 042
     Dates: start: 20240716, end: 20240716
  62. CHLORPHENIRAMINE MALEATE [Concomitant]
     Active Substance: CHLORPHENIRAMINE MALEATE
     Route: 042
     Dates: start: 20240720, end: 20240721
  63. CHLORPHENIRAMINE MALEATE [Concomitant]
     Active Substance: CHLORPHENIRAMINE MALEATE
     Route: 042
     Dates: start: 20240725, end: 20240725
  64. CHLORPHENIRAMINE MALEATE [Concomitant]
     Active Substance: CHLORPHENIRAMINE MALEATE
     Route: 042
     Dates: start: 20240728, end: 20240728
  65. CHLORPHENIRAMINE MALEATE [Concomitant]
     Active Substance: CHLORPHENIRAMINE MALEATE
     Route: 042
     Dates: start: 20240731, end: 20240801
  66. CHLORPHENIRAMINE MALEATE [Concomitant]
     Active Substance: CHLORPHENIRAMINE MALEATE
     Route: 042
     Dates: start: 20240804, end: 20240804
  67. CHLORPHENIRAMINE MALEATE [Concomitant]
     Active Substance: CHLORPHENIRAMINE MALEATE
     Route: 042
     Dates: start: 20240807, end: 20240807
  68. BICANATE [Concomitant]
     Active Substance: CALCIUM CHLORIDE\MAGNESIUM CHLORIDE\POTASSIUM CHLORIDE\SODIUM BICARBONATE\SODIUM CHLORIDE\TRISODIUM
     Route: 041
     Dates: start: 20240708, end: 20240709
  69. FILGRASTIM BS [FILGRASTIM BIOSIMILAR 2] [Concomitant]
     Route: 058
     Dates: start: 20240711, end: 20240712
  70. FILGRASTIM BS [FILGRASTIM BIOSIMILAR 2] [Concomitant]
     Route: 058
     Dates: start: 20240717, end: 20240718
  71. FILGRASTIM BS [FILGRASTIM BIOSIMILAR 2] [Concomitant]
     Route: 058
     Dates: start: 20240725, end: 20240725
  72. FILGRASTIM BS [FILGRASTIM BIOSIMILAR 2] [Concomitant]
     Route: 058
     Dates: start: 20240731, end: 20240802
  73. FILGRASTIM BS [FILGRASTIM BIOSIMILAR 2] [Concomitant]
     Route: 058
     Dates: start: 20240805, end: 20240806

REACTIONS (7)
  - Cytokine release syndrome [Recovered/Resolved]
  - Neutrophil count decreased [Recovered/Resolved]
  - Cardiac failure [Unknown]
  - Hypokalaemia [Unknown]
  - Myocardial infarction [Unknown]
  - Stress cardiomyopathy [Unknown]
  - Arrhythmia induced cardiomyopathy [Unknown]

NARRATIVE: CASE EVENT DATE: 20240713
